FAERS Safety Report 20030999 (Version 5)
Quarter: 2022Q1

REPORT INFORMATION
  Report Type: Spontaneous
  Country: LT (occurrence: LT)
  Receive Date: 20211103
  Receipt Date: 20220110
  Transmission Date: 20220423
  Serious: Yes (Other)
  Sender: FDA-Public Use
  Company Number: LT-BAYER-2021A240742

PATIENT
  Sex: Male

DRUGS (3)
  1. XOFIGO [Suspect]
     Active Substance: RADIUM RA-223 DICHLORIDE
     Dosage: UNK
     Dates: start: 20211008, end: 20211008
  2. XOFIGO [Suspect]
     Active Substance: RADIUM RA-223 DICHLORIDE
     Dosage: UNK
     Dates: start: 20211112, end: 20211112
  3. XOFIGO [Suspect]
     Active Substance: RADIUM RA-223 DICHLORIDE
     Dosage: UNK
     Dates: start: 20211216, end: 20211216

REACTIONS (5)
  - Respiratory tract infection bacterial [Recovered/Resolved]
  - General physical health deterioration [Recovered/Resolved]
  - Pleural effusion [None]
  - Malaise [Recovered/Resolved]
  - Pyrexia [Recovered/Resolved]
